FAERS Safety Report 10471640 (Version 1)
Quarter: 2014Q3

REPORT INFORMATION
  Report Type: Report from Study
  Country: FR (occurrence: FR)
  Receive Date: 20140923
  Receipt Date: 20140923
  Transmission Date: 20150326
  Serious: Yes (Hospitalization, Other)
  Sender: FDA-Public Use
  Company Number: PHHY2014FR116324

PATIENT
  Age: 49 Year
  Sex: Female
  Weight: 63 kg

DRUGS (28)
  1. RAPAMUNE [Suspect]
     Active Substance: SIROLIMUS
     Dosage: UNK UKN, UNK
     Dates: end: 20140604
  2. ORACILLINE [Concomitant]
     Active Substance: PENICILLIN V
     Dosage: 1 ML, BID
  3. INEXIUM [Concomitant]
     Active Substance: ESOMEPRAZOLE
     Dosage: 40 MG, QD
  4. XANAX [Concomitant]
     Active Substance: ALPRAZOLAM
     Dosage: 0.25 MG, QD (AT ANXIETY)
  5. DEBRIDAT//TRIMEBUTINE [Concomitant]
     Dosage: UNK UKN, PRN
  6. LANSOYL [Concomitant]
     Active Substance: MINERAL OIL
     Dosage: UNK UKN, QID (EVENT OF CONSTIPATION)
  7. ARESTAL [Concomitant]
     Active Substance: LOPERAMIDE OXIDE
     Dosage: UNK UKN, PRN
  8. SPASFON [Concomitant]
     Active Substance: PHLOROGLUCINOL
     Dosage: UNK UKN, PRN
  9. MORPHINE [Concomitant]
     Active Substance: MORPHINE
     Dosage: UNK UKN, UNK
  10. NEORAL [Suspect]
     Active Substance: CYCLOSPORINE
     Dosage: 25 MG, BID
  11. CELLCEPT [Concomitant]
     Active Substance: MYCOPHENOLATE MOFETIL\MYCOPHENOLATE MOFETIL HYDROCHLORIDE
     Dosage: 1 DF, BID
  12. CALCIDOSE [Concomitant]
     Active Substance: CALCIUM CARBONATE
     Dosage: 500 MG, UNK
  13. VITAMIN D [Concomitant]
     Active Substance: CHOLECALCIFEROL
     Dosage: UNK UKN, BID
  14. DOLIPRANE [Concomitant]
     Active Substance: ACETAMINOPHEN
     Dosage: UNK UKN, PRN
  15. NERISONE [Concomitant]
     Active Substance: DIFLUCORTOLONE VALERATE
     Dosage: UNK UKN, UNK
  16. ANTITHYMOCYTE IMMUNOGLOBULIN [Suspect]
     Active Substance: THYMOCYTE IMMUNE GLOBULIN NOS
     Dosage: 160 MG, QD
     Route: 042
     Dates: start: 20131205, end: 20131208
  17. TIORFAN [Concomitant]
     Active Substance: RACECADOTRIL
     Dosage: UNK UKN, PRN
  18. DOMPERDONE [Concomitant]
     Dosage: UNK UKN, PRN
  19. SEROPLEX [Concomitant]
     Active Substance: ESCITALOPRAM OXALATE
     Dosage: UNK (ONE TABLET EVERY MORNING)
  20. CORTANCYL [Concomitant]
     Active Substance: PREDNISONE
     Dosage: 30 MG, BID
  21. NEORAL [Suspect]
     Active Substance: CYCLOSPORINE
     Dosage: 100 MG, BID
  22. WELLVONE [Concomitant]
     Active Substance: ATOVAQUONE
     Dosage: 1 DF, UNK
  23. NOXAFIL [Concomitant]
     Active Substance: POSACONAZOLE
     Dosage: 5 ML, QID
  24. MOPRAL [Concomitant]
     Active Substance: OMEPRAZOLE SODIUM
     Dosage: 20 UKN, QD
  25. MOTILYO [Concomitant]
     Dosage: UNK UKN, UNK
  26. AMIKLIN [Concomitant]
     Active Substance: AMIKACIN SULFATE
     Dosage: UNK UKN, UNK
     Dates: start: 20140606, end: 20140608
  27. NEORAL [Suspect]
     Active Substance: CYCLOSPORINE
     Dosage: 200 MG, QD
     Dates: start: 20140503
  28. ZELITREX [Concomitant]
     Active Substance: VALACYCLOVIR HYDROCHLORIDE
     Dosage: 500 MG, BID (1 TABLET MORNING AND EVE)

REACTIONS (53)
  - Amyotrophic lateral sclerosis [Unknown]
  - Pancytopenia [Unknown]
  - Somnolence [Unknown]
  - Hemiplegia [Unknown]
  - Lyme disease [Unknown]
  - Progressive multifocal leukoencephalopathy [Unknown]
  - Blood potassium decreased [Unknown]
  - Blood sodium decreased [Unknown]
  - Rash maculo-papular [Unknown]
  - Oedema peripheral [Unknown]
  - Tachycardia [Unknown]
  - Haemolysis [Unknown]
  - Cerebral ischaemia [Unknown]
  - Aphasia [Unknown]
  - Klebsiella sepsis [Unknown]
  - Lactobacillus infection [Unknown]
  - Gastrointestinal disorder [Unknown]
  - Skin exfoliation [Unknown]
  - Thrombotic thrombocytopenic purpura [Unknown]
  - Haemoglobin decreased [Unknown]
  - Cytomegalovirus infection [Unknown]
  - Stenotrophomonas infection [Unknown]
  - Vitamin D deficiency [Unknown]
  - Abdominal pain upper [Unknown]
  - Mouth ulceration [Unknown]
  - Vasculitis cerebral [Unknown]
  - Epstein-Barr virus infection [Unknown]
  - Candida infection [Unknown]
  - Gastrointestinal oedema [Unknown]
  - Neutropenia [Unknown]
  - Thrombotic microangiopathy [Unknown]
  - Oral candidiasis [Unknown]
  - Inflammation [Unknown]
  - Graft versus host disease in skin [Recovering/Resolving]
  - Haemolytic anaemia [Unknown]
  - Neurotoxicity [Unknown]
  - Toxicity to various agents [Unknown]
  - Pyrexia [Recovered/Resolved]
  - Mucosal inflammation [Unknown]
  - Blood pressure decreased [Unknown]
  - Thrombocytopenia [Unknown]
  - Aspergillus infection [Unknown]
  - Confusional state [Unknown]
  - Blood calcium decreased [Unknown]
  - Graft versus host disease in gastrointestinal tract [Recovering/Resolving]
  - Hepatocellular injury [Unknown]
  - Abdominal pain [Unknown]
  - Dermatitis [Unknown]
  - Thrombophlebitis superficial [Unknown]
  - Septic shock [Unknown]
  - Loss of consciousness [Unknown]
  - Gastrointestinal candidiasis [Unknown]
  - Human herpesvirus 6 infection [Unknown]

NARRATIVE: CASE EVENT DATE: 20131205
